FAERS Safety Report 10208778 (Version 4)
Quarter: 2014Q3

REPORT INFORMATION
  Report Type: Report from Study
  Country: US (occurrence: US)
  Receive Date: 20140530
  Receipt Date: 20140731
  Transmission Date: 20150326
  Serious: Yes (Death, Hospitalization, Other)
  Sender: FDA-Public Use
  Company Number: US-JNJFOC-20140519831

PATIENT
  Age: 70 Year
  Sex: Male
  Weight: 58.5 kg

DRUGS (7)
  1. IMBRUVICA [Suspect]
     Active Substance: IBRUTINIB
     Indication: MANTLE CELL LYMPHOMA
     Route: 048
     Dates: start: 20131224, end: 201402
  2. VANCOMYCIN [Concomitant]
     Active Substance: VANCOMYCIN
  3. NEXIUM [Concomitant]
     Active Substance: ESOMEPRAZOLE MAGNESIUM
  4. METOPROLOL [Concomitant]
     Active Substance: METOPROLOL
  5. COMPAZINE [Concomitant]
     Active Substance: PROCHLORPERAZINE MALEATE
     Indication: NAUSEA
  6. KCL [Concomitant]
     Active Substance: POTASSIUM CHLORIDE
  7. HCTZ [Concomitant]
     Active Substance: HYDROCHLOROTHIAZIDE

REACTIONS (10)
  - Gastric cancer [Fatal]
  - Oral candidiasis [Unknown]
  - Hypotension [Unknown]
  - Hypertension [Unknown]
  - Anaemia [Unknown]
  - Clostridium test positive [Unknown]
  - Blood creatinine increased [Unknown]
  - Febrile neutropenia [Not Recovered/Not Resolved]
  - Blood potassium decreased [Unknown]
  - Platelet count decreased [Unknown]

NARRATIVE: CASE EVENT DATE: 2014
